FAERS Safety Report 7658274-X (Version None)
Quarter: 2011Q3

REPORT INFORMATION
  Report Type: 
  Country: None (occurrence: None)
  Receive Date: 20110802
  Receipt Date: 20110718
  Transmission Date: 20111222
  Serious: Yes (Hospitalization)
  Sender: FDA-Public Use
  Company Number: 08-AUR-06717

PATIENT
  Age: 20 Year
  Sex: Male

DRUGS (5)
  1. ANTIBIOTICS (ANTIBIOTICS) [Concomitant]
  2. AZITHROMYCIN [Suspect]
     Indication: PRODUCT USED FOR UNKNOWN INDICATION
  3. CIPROFLOXACIN [Suspect]
     Indication: PRODUCT USED FOR UNKNOWN INDICATION
     Dosage: ORAL
     Route: 048
  4. CORTICOSTEROIDS (CORTICOSTEROIDS) [Concomitant]
  5. OMEPRAZOLE [Suspect]
     Indication: PRODUCT USED FOR UNKNOWN INDICATION

REACTIONS (14)
  - PYREXIA [None]
  - TACHYCARDIA [None]
  - DISTAL INTESTINAL OBSTRUCTION SYNDROME [None]
  - LUNG DISORDER [None]
  - VOMITING [None]
  - CLOSTRIDIUM TEST POSITIVE [None]
  - ABDOMINAL TENDERNESS [None]
  - CONDITION AGGRAVATED [None]
  - GASTROINTESTINAL SOUNDS ABNORMAL [None]
  - DEHYDRATION [None]
  - APPENDICITIS [None]
  - PSEUDOMEMBRANOUS COLITIS [None]
  - CONSTIPATION [None]
  - HYPOTENSION [None]
